FAERS Safety Report 9114334 (Version 1)
Quarter: 2013Q1

REPORT INFORMATION
  Report Type: Spontaneous
  Country: US (occurrence: None)
  Receive Date: 20130220
  Receipt Date: 20130220
  Transmission Date: 20140127
  Serious: Yes (Other)
  Sender: FDA-Public Use
  Company Number: None

PATIENT
  Age: 57 Year
  Sex: Female
  Weight: 56.25 kg

DRUGS (1)
  1. MYCOPHENOLATE MOFETIL [Suspect]
     Indication: FOCAL SEGMENTAL GLOMERULOSCLEROSIS
     Dosage: 1 PILL   4-5 TIMES - PER DAY   PO?11/25/2012  --  02/15/2013
     Route: 048
     Dates: start: 20121125, end: 20130215

REACTIONS (5)
  - General physical health deterioration [None]
  - Product quality issue [None]
  - Product counterfeit [None]
  - Product substitution issue [None]
  - Immunosuppression [None]
